FAERS Safety Report 9338972 (Version 1)
Quarter: 2013Q2

REPORT INFORMATION
  Report Type: Spontaneous
  Country: US (occurrence: None)
  Receive Date: 20130606
  Receipt Date: 20130606
  Transmission Date: 20140414
  Serious: No
  Sender: FDA-Public Use
  Company Number: None

PATIENT
  Age: 75 Year
  Sex: Male

DRUGS (4)
  1. STIVARGA [Suspect]
     Route: 048
     Dates: start: 20130517, end: 20130528
  2. LEXAPRO [Concomitant]
  3. FLEXERIL [Concomitant]
  4. COUMADIN [Concomitant]

REACTIONS (1)
  - Rash [None]
